FAERS Safety Report 16085891 (Version 2)
Quarter: 2019Q2

REPORT INFORMATION
  Report Type: Spontaneous
  Country: US (occurrence: US)
  Receive Date: 20190318
  Receipt Date: 20190611
  Transmission Date: 20190711
  Serious: Yes (Death, Other)
  Sender: FDA-Public Use
  Company Number: US-PFIZER INC-2019111638

PATIENT
  Age: 80 Year
  Sex: Female

DRUGS (2)
  1. IBRANCE [Suspect]
     Active Substance: PALBOCICLIB
     Indication: BREAST CANCER
     Dosage: 75 MG, CYCLIC X 21 DAYS
     Route: 048
     Dates: start: 201804
  2. IBRANCE [Suspect]
     Active Substance: PALBOCICLIB
     Dosage: UNSPECIFIED REDUCED DOSE (X 21 DAYS)
     Route: 048
     Dates: end: 20180726

REACTIONS (2)
  - Death [Fatal]
  - Neutropenia [Fatal]

NARRATIVE: CASE EVENT DATE: 20181221
